FAERS Safety Report 15268558 (Version 1)
Quarter: 2018Q3

REPORT INFORMATION
  Report Type: Spontaneous
  Country: US (occurrence: US)
  Receive Date: 20180726
  Receipt Date: 20180726
  Transmission Date: 20181010
  Serious: Yes (Life-Threatening)
  Sender: FDA-Public Use
  Company Number: None

PATIENT
  Age: 46 Year
  Sex: Female
  Weight: 68.9 kg

DRUGS (1)
  1. CEFAZOLIN\DEXTROSE [Suspect]
     Active Substance: CEFAZOLIN\DEXTROSE

REACTIONS (3)
  - Heart rate increased [None]
  - Blood pressure decreased [None]
  - Anaphylactic reaction [None]

NARRATIVE: CASE EVENT DATE: 20180108
